FAERS Safety Report 7889522-9 (Version None)
Quarter: 2011Q4

REPORT INFORMATION
  Report Type: 
  Country: None (occurrence: None)
  Receive Date: 20111101
  Receipt Date: 20111018
  Transmission Date: 20120403
  Serious: Yes (Other)
  Sender: FDA-Public Use
  Company Number: 1000024934

PATIENT
  Age: 82 Year
  Sex: Female
  Weight: 49 kg

DRUGS (8)
  1. PREVISCAN (FLUINDIONE) (FLUINDIONE) [Concomitant]
  2. COVERSYL (PERINDOPRIL ERBUMINE) (PERINDOPRIL ERBUMINE) [Concomitant]
  3. PARIET (RABEPRAZOLE SODIUM) (RABEPRAZOLE SODIUM) [Concomitant]
  4. ALDACTONE [Concomitant]
  5. DIFFU K (POTASSIUM CHLORIDE) (POTASSIUM CHLORIDE) [Concomitant]
  6. VECTARION (ALMITRINE DIMESILATE) (ALMITRINE DIMESILATE) [Concomitant]
  7. MEMANTINE HYDROCHLORIDE [Suspect]
     Indication: DEMENTIA ALZHEIMER'S TYPE
     Dosage: 5 MG (5 MG, 1 IN 1 D), ORAL
     Route: 048
     Dates: start: 20110615, end: 20110630
  8. FUROSEMIDE [Concomitant]

REACTIONS (2)
  - PSYCHOMOTOR RETARDATION [None]
  - DIARRHOEA [None]
